FAERS Safety Report 11547116 (Version 1)
Quarter: 2015Q3

REPORT INFORMATION
  Report Type: Spontaneous
  Country: US (occurrence: US)
  Receive Date: 20150924
  Receipt Date: 20150924
  Transmission Date: 20151125
  Serious: Yes (Hospitalization, Other)
  Sender: FDA-Public Use
  Company Number: PHEH2015US017959

PATIENT
  Age: 61 Year
  Sex: Female
  Weight: 119 kg

DRUGS (12)
  1. DIOVAN [Suspect]
     Active Substance: VALSARTAN
     Indication: PRODUCT USED FOR UNKNOWN INDICATION
     Dosage: UNK
     Route: 065
     Dates: end: 201507
  2. THEO-DUR [Suspect]
     Active Substance: THEOPHYLLINE ANHYDROUS
     Indication: ASTHMA
     Dosage: 300 MG, Q12H
     Route: 048
  3. ATORVASTATIN [Concomitant]
     Active Substance: ATORVASTATIN
     Indication: BLOOD CHOLESTEROL INCREASED
     Route: 065
  4. ALLOPURINOL. [Concomitant]
     Active Substance: ALLOPURINOL
     Indication: GOUT
     Route: 065
  5. MOBIC [Concomitant]
     Active Substance: MELOXICAM
     Indication: ARTHRITIS
     Route: 065
  6. LYRICA [Suspect]
     Active Substance: PREGABALIN
     Indication: NERVE INJURY
     Dosage: 50 MG, TID
     Route: 048
     Dates: start: 2013
  7. LYRICA [Suspect]
     Active Substance: PREGABALIN
     Dosage: UNK
  8. PRILOSEC [Concomitant]
     Active Substance: OMEPRAZOLE MAGNESIUM
     Indication: DYSPEPSIA
     Route: 065
  9. NORCO [Concomitant]
     Active Substance: ACETAMINOPHEN\HYDROCODONE BITARTRATE
     Indication: PAIN
     Route: 065
  10. TIZANIDINE HCL [Concomitant]
     Active Substance: TIZANIDINE HYDROCHLORIDE
     Indication: MUSCLE SPASMS
     Dosage: 2 MG, UNK
     Route: 065
  11. NEURONTIN [Suspect]
     Active Substance: GABAPENTIN
     Indication: NERVOUS SYSTEM DISORDER
     Dosage: 300 MG, TWO OR THREE TIMES A DAY
     Route: 065
     Dates: start: 2006, end: 2006
  12. TRAMADOL. [Concomitant]
     Active Substance: TRAMADOL
     Indication: PAIN
     Route: 065

REACTIONS (23)
  - Atrial fibrillation [Unknown]
  - Viral infection [Recovered/Resolved]
  - Depression [Unknown]
  - Anxiety [Unknown]
  - Toxicity to various agents [Recovered/Resolved]
  - Fall [Unknown]
  - Pyrexia [Unknown]
  - Dislocation of vertebra [Unknown]
  - Blood pressure abnormal [Recovered/Resolved]
  - Intervertebral disc protrusion [Unknown]
  - Feeling abnormal [Unknown]
  - Heart rate increased [Recovered/Resolved]
  - Chills [Unknown]
  - Device failure [Unknown]
  - Electrocardiogram Q waves [Unknown]
  - Mental impairment [Recovered/Resolved]
  - Dehydration [Recovered/Resolved]
  - Malaise [Unknown]
  - Spinal cord compression [Unknown]
  - Fibrin D dimer increased [Unknown]
  - Suicidal ideation [Recovered/Resolved]
  - Crying [Unknown]
  - Drug hypersensitivity [Not Recovered/Not Resolved]

NARRATIVE: CASE EVENT DATE: 2006
